FAERS Safety Report 12560464 (Version 1)
Quarter: 2016Q3

REPORT INFORMATION
  Report Type: Spontaneous
  Country: US (occurrence: None)
  Receive Date: 20160714
  Receipt Date: 20160714
  Transmission Date: 20161109
  Serious: No
  Sender: FDA-Public Use
  Company Number: None

PATIENT
  Age: 54 Year
  Sex: Female
  Weight: 77.11 kg

DRUGS (5)
  1. LOSATRON [Concomitant]
  2. SIMBASTATEN [Concomitant]
  3. ESOMEPRAZOLE DR 40, 40 MG [Suspect]
     Active Substance: ESOMEPRAZOLE
     Indication: GASTROOESOPHAGEAL REFLUX DISEASE
     Dosage: 90 CAPSULE(S) IN THE MORNING TAKEN BY MOUTH
     Route: 048
  4. CLONODINE [Concomitant]
  5. FLONASEE [Concomitant]

REACTIONS (3)
  - Product quality issue [None]
  - Drug effect decreased [None]
  - Dyspepsia [None]

NARRATIVE: CASE EVENT DATE: 20160704
